FAERS Safety Report 25124121 (Version 1)
Quarter: 2025Q1

REPORT INFORMATION
  Report Type: Spontaneous
  Country: CA (occurrence: CA)
  Receive Date: 20250326
  Receipt Date: 20250326
  Transmission Date: 20250409
  Serious: Yes (Other)
  Sender: ASTELLAS
  Company Number: CA-ASTELLAS-2025-AER-016488

PATIENT
  Age: 20 Month
  Sex: Male

DRUGS (6)
  1. TACROLIMUS [Suspect]
     Active Substance: TACROLIMUS
     Indication: Hyperkeratosis
     Route: 065
  2. AMOXICILLIN TRIHYDRATE [Suspect]
     Active Substance: AMOXICILLIN
     Indication: Hyperkeratosis
     Route: 048
  3. BETAMETHASONE SODIUM PHOSPHATE [Suspect]
     Active Substance: BETAMETHASONE SODIUM PHOSPHATE
     Indication: Hyperkeratosis
     Route: 048
  4. CEPHALEXIN HYDROCHLORIDE [Suspect]
     Active Substance: CEPHALEXIN HYDROCHLORIDE
     Indication: Hyperkeratosis
     Route: 048
  5. FUSIDIC ACID [Suspect]
     Active Substance: FUSIDIC ACID
     Indication: Hyperkeratosis
     Route: 065
  6. OZENOXACIN [Suspect]
     Active Substance: OZENOXACIN
     Indication: Hyperkeratosis
     Route: 065

REACTIONS (2)
  - Treatment failure [Unknown]
  - Off label use [Unknown]
